FAERS Safety Report 25763867 (Version 1)
Quarter: 2025Q3

REPORT INFORMATION
  Report Type: Spontaneous
  Country: US (occurrence: US)
  Receive Date: 20250905
  Receipt Date: 20250905
  Transmission Date: 20251021
  Serious: No
  Sender: DOMPE FARMACEUTICI
  Company Number: US-FARMAPROD-202412-4093

PATIENT
  Sex: Male

DRUGS (22)
  1. OXERVATE [Suspect]
     Active Substance: CENEGERMIN-BKBJ
     Indication: Neurotrophic keratopathy
     Route: 047
     Dates: start: 20241125
  2. OXERVATE [Suspect]
     Active Substance: CENEGERMIN-BKBJ
  3. JARDIANCE [Concomitant]
     Active Substance: EMPAGLIFLOZIN
  4. B12 ACTIVE [Concomitant]
  5. VITAMIN D3 [Concomitant]
     Active Substance: CHOLECALCIFEROL
  6. ATORVASTATIN CALCIUM [Concomitant]
     Active Substance: ATORVASTATIN CALCIUM
  7. TAMSULOSIN HYDROCHLORIDE [Concomitant]
     Active Substance: TAMSULOSIN HYDROCHLORIDE
  8. FINASTERIDE [Concomitant]
     Active Substance: FINASTERIDE
  9. CARVEDILOL [Concomitant]
     Active Substance: CARVEDILOL
  10. PIOGLITAZONE [Concomitant]
     Active Substance: PIOGLITAZONE
  11. VALTREX [Concomitant]
     Active Substance: VALACYCLOVIR HYDROCHLORIDE
  12. MINERALS\VITAMINS [Concomitant]
     Active Substance: MINERALS\VITAMINS
  13. TRAVOPROST [Concomitant]
     Active Substance: TRAVOPROST
  14. BRIMONIDINE TARTRATE [Concomitant]
     Active Substance: BRIMONIDINE TARTRATE
  15. COSOPT PF [Concomitant]
     Active Substance: DORZOLAMIDE HYDROCHLORIDE\TIMOLOL MALEATE
  16. MOXIFLOXACIN [Concomitant]
     Active Substance: MOXIFLOXACIN
  17. PREDNISOLONE [Concomitant]
     Active Substance: PREDNISOLONE
  18. UNSPECIFIED INGREDIENT [Concomitant]
     Active Substance: UNSPECIFIED INGREDIENT
  19. METFORMIN HYDROCHLORIDE [Concomitant]
     Active Substance: METFORMIN HYDROCHLORIDE
  20. FUROSEMIDE [Concomitant]
     Active Substance: FUROSEMIDE
  21. IRBESARTAN [Concomitant]
     Active Substance: IRBESARTAN
  22. ELIQUIS [Concomitant]
     Active Substance: APIXABAN

REACTIONS (6)
  - Eye swelling [Not Recovered/Not Resolved]
  - Eye pain [Not Recovered/Not Resolved]
  - Eye pruritus [Unknown]
  - Vision blurred [Unknown]
  - Ocular hyperaemia [Unknown]
  - Eye irritation [Unknown]
